FAERS Safety Report 7728890-5 (Version None)
Quarter: 2011Q3

REPORT INFORMATION
  Report Type: 
  Country: None (occurrence: None)
  Receive Date: 20110906
  Receipt Date: 20110830
  Transmission Date: 20111222
  Serious: Yes (Hospitalization, Other)
  Sender: FDA-Public Use
  Company Number: US-AMGEN-USASP2011039567

PATIENT
  Age: 16 Year
  Sex: Male

DRUGS (18)
  1. ETHAMBUTOL [Concomitant]
     Dosage: 400 MG, UNK
  2. MIRTAZAPINE [Concomitant]
     Dosage: 300 MG, UNK
  3. PREDNISONE [Concomitant]
  4. AZITHROMYCIN [Concomitant]
     Dosage: 250 MG, UNK
  5. ACYCLOVIR [Concomitant]
     Dosage: 800 MG, Q12H
  6. IVIGLOB-EX [Concomitant]
  7. NPLATE [Suspect]
  8. NPLATE [Suspect]
  9. CORTICOSTEROIDS [Concomitant]
  10. NPLATE [Suspect]
  11. BICITRA                            /00586801/ [Concomitant]
     Dosage: 10 ML, Q12H
  12. DRONABINOL [Concomitant]
     Dosage: UNK
  13. TACROLIMUS [Concomitant]
     Dosage: UNK
     Dates: end: 20110725
  14. MORPHINE [Concomitant]
     Dosage: 15 MG, Q12H
  15. NPLATE [Suspect]
     Indication: MYELODYSPLASTIC SYNDROME
     Dosage: 5 MUG/KG, UNK
     Dates: start: 20110105
  16. RITUXIMAB [Concomitant]
  17. POTASSIUM CHLORIDE [Concomitant]
     Dosage: 10 MEQ, UNK
  18. LISINOPRIL [Concomitant]
     Dosage: 5 MG, QD

REACTIONS (9)
  - NEPHRITIS [None]
  - EPSTEIN-BARR VIRUS ASSOCIATED LYMPHOPROLIFERATIVE DISORDER [None]
  - HOSPITALISATION [None]
  - CHRONIC GRAFT VERSUS HOST DISEASE [None]
  - PLASMACYTOMA [None]
  - THROMBOCYTOPENIA [None]
  - RENAL FAILURE [None]
  - PANCYTOPENIA [None]
  - PROTEINURIA [None]
